FAERS Safety Report 8521556-3 (Version None)
Quarter: 2012Q3

REPORT INFORMATION
  Report Type: 
  Country: None (occurrence: None)
  Receive Date: 20120719
  Receipt Date: 20120713
  Transmission Date: 20120928
  Serious: No
  Sender: FDA-Public Use
  Company Number: PHEH2012US013040

PATIENT
  Sex: Male

DRUGS (7)
  1. EXELON [Suspect]
     Dosage: 4.6 MG, UNK
     Route: 062
     Dates: start: 20120609
  2. EXELON [Suspect]
     Dates: start: 20120609
  3. DIGOXIN [Concomitant]
  4. CALCIUM [Concomitant]
  5. VITAMINS NOS [Concomitant]
  6. WARFARIN SODIUM [Concomitant]
  7. NAMENDA [Concomitant]

REACTIONS (1)
  - HYPERSOMNIA [None]
